FAERS Safety Report 9250601 (Version 2)
Quarter: 2013Q2

REPORT INFORMATION
  Report Type: Report from Study
  Country: GB (occurrence: GB)
  Receive Date: 20130424
  Receipt Date: 20130524
  Transmission Date: 20140414
  Serious: Yes (Hospitalization)
  Sender: FDA-Public Use
  Company Number: GB-ROCHE-1187956

PATIENT
  Sex: Female
  Weight: 61 kg

DRUGS (5)
  1. RITUXIMAB [Suspect]
     Indication: RHEUMATOID ARTHRITIS
     Dosage: LAST DOSE PRIOR TO SAE ON 29/MAY/2012
     Route: 065
     Dates: start: 20111108
  2. SULPHASALAZINE [Concomitant]
     Dosage: TWICE A DAY
     Route: 048
     Dates: start: 201111
  3. PREDNISONE [Concomitant]
     Route: 065
  4. FERROUS SULPHATE [Concomitant]
     Dosage: TWICE A DAY
     Route: 048
  5. CHLORPHENAMINE [Concomitant]
     Dosage: THREE TIMES A DAY
     Route: 048

REACTIONS (5)
  - Pyrexia [Recovered/Resolved]
  - Rash [Recovered/Resolved]
  - Infection [Recovered/Resolved]
  - Malaise [Unknown]
  - Rash maculo-papular [Recovered/Resolved]
